FAERS Safety Report 9338145 (Version 1)
Quarter: 2013Q2

REPORT INFORMATION
  Report Type: Report from Study
  Country: VE (occurrence: VE)
  Receive Date: 20130610
  Receipt Date: 20130610
  Transmission Date: 20140414
  Serious: Yes (Hospitalization)
  Sender: FDA-Public Use
  Company Number: VE-ROCHE-1234745

PATIENT
  Age: 63 Year
  Sex: Male

DRUGS (4)
  1. XOLAIR [Suspect]
     Indication: ASTHMA
     Route: 058
  2. FORADIL [Suspect]
     Indication: ASTHMA
     Route: 065
  3. MIFLONIDE [Suspect]
     Indication: ASTHMA
     Route: 065
  4. SALBUTAMOL [Concomitant]

REACTIONS (1)
  - Pneumonia [Recovered/Resolved]
